FAERS Safety Report 4703842-8 (Version None)
Quarter: 2005Q2

REPORT INFORMATION
  Report Type: 
  Country: None (occurrence: None)
  Receive Date: 20050630
  Receipt Date: 20050516
  Transmission Date: 20051028
  Serious: No
  Sender: FDA-Public Use
  Company Number: US-GLAXOSMITHKLINE-A0558774A

PATIENT
  Sex: Female

DRUGS (6)
  1. FLOVENT [Suspect]
     Indication: ASTHMA
     Dosage: 4PUFF TWICE PER DAY
     Route: 055
     Dates: start: 20050501
  2. FLOVENT [Suspect]
     Dosage: 4PUFF TWICE PER DAY
     Route: 055
     Dates: end: 20050401
  3. ALBUTEROL [Concomitant]
  4. SEREVENT [Concomitant]
  5. ACCUPRIL [Concomitant]
  6. DIFLUCAN [Concomitant]

REACTIONS (2)
  - DRUG INEFFECTIVE [None]
  - PHARMACEUTICAL PRODUCT COMPLAINT [None]
